FAERS Safety Report 14119329 (Version 1)
Quarter: 2017Q4

REPORT INFORMATION
  Report Type: Spontaneous
  Country: US (occurrence: US)
  Receive Date: 20171024
  Receipt Date: 20171024
  Transmission Date: 20180321
  Serious: No
  Sender: FDA-Public Use
  Company Number: US-PFIZER INC-2017452837

PATIENT
  Age: 61 Year
  Sex: Female

DRUGS (4)
  1. LYRICA [Suspect]
     Active Substance: PREGABALIN
     Indication: POLYNEUROPATHY ALCOHOLIC
  2. PROGESTERONE. [Concomitant]
     Active Substance: PROGESTERONE
     Indication: HORMONE THERAPY
     Dosage: UNK
  3. LYRICA [Suspect]
     Active Substance: PREGABALIN
     Indication: NEUROPATHY PERIPHERAL
     Dosage: 150 MG, 3X/DAY (75MG TWO CAPSULES THREE TIMES A DAY)
     Route: 048
     Dates: start: 2016
  4. ESTROGEN [Concomitant]
     Active Substance: ESTROGENS
     Indication: HORMONE REPLACEMENT THERAPY
     Dosage: UNK, EVERY 3 MONTHS
     Route: 067

REACTIONS (6)
  - Pain in extremity [Unknown]
  - Movement disorder [Unknown]
  - Feeling abnormal [Not Recovered/Not Resolved]
  - Sedation [Not Recovered/Not Resolved]
  - Weight increased [Unknown]
  - Confusional state [Recovered/Resolved with Sequelae]

NARRATIVE: CASE EVENT DATE: 2016
